FAERS Safety Report 6645668-4 (Version None)
Quarter: 2010Q1

REPORT INFORMATION
  Report Type: 
  Country: None (occurrence: None)
  Receive Date: 20100323
  Receipt Date: 20100309
  Transmission Date: 20100710
  Serious: Yes (Hospitalization)
  Sender: FDA-Public Use
  Company Number: US-ELI_LILLY_AND_COMPANY-US201003004220

PATIENT
  Sex: Female

DRUGS (19)
  1. FORTEO [Suspect]
     Indication: OSTEOPOROSIS
     Dosage: 20 UG, DAILY (1/D)
     Dates: start: 20091201
  2. ANAFRANIL [Concomitant]
     Dosage: 175 MG, EACH EVENING
  3. BACLOFEN [Concomitant]
     Indication: MUSCLE RELAXANT THERAPY
  4. CALTRATE + VITAMIN D [Concomitant]
     Dosage: UNK, 2/D
  5. CHLORAL HYDRATE [Concomitant]
     Indication: SLEEP DISORDER
  6. DIAZEPAM [Concomitant]
     Dosage: UNK, AS NEEDED
  7. FLONASE [Concomitant]
  8. LACTULOSE [Concomitant]
  9. LORTAB [Concomitant]
  10. METHADONE HCL [Concomitant]
  11. NYSTATIN [Concomitant]
  12. PEPCID [Concomitant]
  13. PHENERGAN HCL [Concomitant]
  14. OMEPRAZOLE [Concomitant]
  15. TRIAMTERENE AND HYDROCHLOROTHIAZIDE [Concomitant]
  16. ZOCOR [Concomitant]
  17. IRON [Concomitant]
  18. VITAMIN E [Concomitant]
  19. VITAMIN B6 [Concomitant]

REACTIONS (7)
  - CELLULITIS [None]
  - ERYTHEMA [None]
  - KNEE ARTHROPLASTY [None]
  - MYALGIA [None]
  - OEDEMA PERIPHERAL [None]
  - PAIN IN EXTREMITY [None]
  - SKIN DISORDER [None]
